FAERS Safety Report 5534745-7 (Version None)
Quarter: 2007Q4

REPORT INFORMATION
  Report Type: 
  Country: None (occurrence: None)
  Receive Date: 20071205
  Receipt Date: 20071127
  Transmission Date: 20080405
  Serious: Yes (Death, Life-Threatening, Hospitalization, Other)
  Sender: FDA-Public Use
  Company Number: GB-JNJFOC-20070705632

PATIENT
  Sex: Male
  Weight: 68 kg

DRUGS (6)
  1. REMICADE [Suspect]
     Indication: RHEUMATOID ARTHRITIS
     Route: 042
  2. PREDNISOLONE [Concomitant]
  3. ACTONEL [Concomitant]
  4. LIPITOR [Concomitant]
  5. RAMIPRIL [Concomitant]
  6. DIAGLYK [Concomitant]

REACTIONS (2)
  - AMYLOIDOSIS [None]
  - CARDIAC FAILURE [None]
